FAERS Safety Report 16323280 (Version 3)
Quarter: 2019Q3

REPORT INFORMATION
  Report Type: Report from Study
  Country: EG (occurrence: EG)
  Receive Date: 20190517
  Receipt Date: 20190911
  Transmission Date: 20191004
  Serious: Yes (Congenital Anomaly, Other)
  Sender: FDA-Public Use
  Company Number: EG-SA-2019SA134450

PATIENT
  Age: 9 Month
  Sex: Male

DRUGS (7)
  1. HAEMOJET [Concomitant]
  2. ACTRAPID [Concomitant]
     Active Substance: INSULIN HUMAN
     Indication: TYPE 1 DIABETES MELLITUS
     Dosage: 20 IU, BID
     Route: 063
     Dates: start: 20180514
  3. ACTRAPID [Concomitant]
     Active Substance: INSULIN HUMAN
     Dosage: 15 OR LESS ACCORDING TO MEALS
     Route: 063
  4. INSULIN GLARGINE [Suspect]
     Active Substance: INSULIN GLARGINE
     Dosage: 15 IU
     Route: 063
  5. CALCIUM [Concomitant]
     Active Substance: CALCIUM
     Dosage: UNK UNK, QD
     Route: 048
     Dates: start: 201803
  6. INSULIN GLARGINE [Suspect]
     Active Substance: INSULIN GLARGINE
     Indication: TYPE 1 DIABETES MELLITUS
     Dosage: 20 IU, QD
     Route: 063
     Dates: start: 20180514
  7. IRON [Concomitant]
     Active Substance: IRON
     Dosage: UNK UNK, QD
     Route: 048
     Dates: start: 20180403

REACTIONS (4)
  - Cardiac septal defect [Recovered/Resolved]
  - Blood glucose decreased [Unknown]
  - Exposure via breast milk [Unknown]
  - Foetal exposure during pregnancy [Unknown]
